FAERS Safety Report 7041917-1 (Version None)
Quarter: 2010Q4

REPORT INFORMATION
  Report Type: 
  Country: None (occurrence: None)
  Receive Date: 20101013
  Receipt Date: 20091109
  Transmission Date: 20110411
  Serious: Yes (Hospitalization)
  Sender: FDA-Public Use
  Company Number: US-ASTRAZENECA-2009SE25929

PATIENT
  Age: 67 Year
  Sex: Female

DRUGS (4)
  1. SYMBICORT [Suspect]
     Route: 055
  2. AVELOX [Suspect]
     Route: 065
  3. DUONEB [Suspect]
     Route: 065
  4. SALMETEROL [Concomitant]

REACTIONS (1)
  - ASTHMA [None]
